FAERS Safety Report 9607641 (Version 3)
Quarter: 2013Q4

REPORT INFORMATION
  Report Type: Spontaneous
  Country: FR (occurrence: FR)
  Receive Date: 20131009
  Receipt Date: 20131028
  Transmission Date: 20140711
  Serious: Yes (Other)
  Sender: FDA-Public Use
  Company Number: FR-009507513-2007-153385-NL

PATIENT
  Age: 24 Year
  Sex: Female
  Weight: 48 kg

DRUGS (2)
  1. IMPLANON [Suspect]
     Indication: PRODUCT USED FOR UNKNOWN INDICATION
     Dosage: CONTINUING: YES
     Dates: start: 20060105
  2. ZYRTEC [Concomitant]
     Dosage: FREQUENCY: PRN

REACTIONS (6)
  - Procedural complication [Not Recovered/Not Resolved]
  - Ovarian cyst [Unknown]
  - Medical observation normal [Unknown]
  - Breast discomfort [Not Recovered/Not Resolved]
  - Therapeutic product ineffective [Unknown]
  - Incorrect drug administration duration [Unknown]
